FAERS Safety Report 8914553 (Version 3)
Quarter: 2014Q2

REPORT INFORMATION
  Report Type: Spontaneous
  Country: IE (occurrence: IE)
  Receive Date: 20121119
  Receipt Date: 20131120
  Transmission Date: 20141212
  Serious: Yes (Hospitalization, Other)
  Sender: FDA-Public Use
  Company Number: IE-TEVA-369204ISR

PATIENT
  Age: 69 Year
  Sex: Female

DRUGS (2)
  1. CARBOPLATIN [Suspect]
     Indication: SMALL CELL LUNG CANCER LIMITED STAGE
     Route: 065
  2. ETOPOSIDE [Suspect]
     Indication: SMALL CELL LUNG CANCER LIMITED STAGE
     Route: 065

REACTIONS (1)
  - Posterior reversible encephalopathy syndrome [Recovered/Resolved]
